FAERS Safety Report 7476290-8 (Version None)
Quarter: 2011Q2

REPORT INFORMATION
  Report Type: 
  Country: None (occurrence: None)
  Receive Date: 20110510
  Receipt Date: 20110510
  Transmission Date: 20111010
  Serious: Yes (Other)
  Sender: FDA-Public Use
  Company Number: None

PATIENT
  Age: 39 Year
  Sex: Female
  Weight: 79.3795 kg

DRUGS (2)
  1. CYMBALTA [Suspect]
     Indication: ANXIETY
     Dosage: 60MG 1POQD; 30MG 1POQD
     Route: 048
     Dates: start: 20110401
  2. CYMBALTA [Suspect]
     Indication: ANXIETY
     Dosage: 60MG 1POQD; 30MG 1POQD
     Route: 048
     Dates: start: 20091001

REACTIONS (11)
  - VOMITING [None]
  - NAUSEA [None]
  - IMPAIRED WORK ABILITY [None]
  - PARAESTHESIA [None]
  - DISORIENTATION [None]
  - TREMOR [None]
  - CONFUSIONAL STATE [None]
  - HEADACHE [None]
  - HYPERHIDROSIS [None]
  - GASTROINTESTINAL DISORDER [None]
  - DRUG WITHDRAWAL SYNDROME [None]
